FAERS Safety Report 16700005 (Version 2)
Quarter: 2019Q3

REPORT INFORMATION
  Report Type: Spontaneous
  Country: PL (occurrence: PL)
  Receive Date: 20190813
  Receipt Date: 20190826
  Transmission Date: 20191004
  Serious: Yes (Hospitalization, Other)
  Sender: FDA-Public Use
  Company Number: PL-BAXTER-2019BAX015298

PATIENT
  Age: 3 Year
  Sex: Male

DRUGS (3)
  1. FLUKONAZOL ROZTWOR DO INFUZJI 2MG/ML [Suspect]
     Active Substance: FLUCONAZOLE
     Indication: ANTIFUNGAL PROPHYLAXIS
     Route: 065
  2. PREDNISONE. [Suspect]
     Active Substance: PREDNISONE
     Indication: ACUTE LYMPHOCYTIC LEUKAEMIA
     Route: 065
  3. VINCRISTINE [Suspect]
     Active Substance: VINCRISTINE
     Indication: ACUTE LYMPHOCYTIC LEUKAEMIA
     Route: 065

REACTIONS (7)
  - Liver disorder [Unknown]
  - Bone marrow failure [Unknown]
  - Postoperative wound complication [Unknown]
  - Intestinal perforation [Recovered/Resolved]
  - Intestinal obstruction [Unknown]
  - Drug interaction [Unknown]
  - Hypercorticoidism [Unknown]
